FAERS Safety Report 20375714 (Version 3)
Quarter: 2022Q2

REPORT INFORMATION
  Report Type: Spontaneous
  Country: SE (occurrence: SE)
  Receive Date: 20220125
  Receipt Date: 20220401
  Transmission Date: 20220720
  Serious: Yes (Life-Threatening, Other)
  Sender: FDA-Public Use
  Company Number: SE-PFIZER INC-202200054019

PATIENT
  Age: 45 Year
  Sex: Female

DRUGS (5)
  1. ESTRADIOL [Suspect]
     Active Substance: ESTRADIOL
     Indication: Oestrogen deficiency
     Dosage: 1 DF, EVERY 3 MONTHS
     Route: 067
     Dates: start: 20220111, end: 20220111
  2. ESTRADIOL [Suspect]
     Active Substance: ESTRADIOL
     Indication: Urinary tract disorder
  3. ESTRADIOL [Suspect]
     Active Substance: ESTRADIOL
     Indication: Genital disorder
  4. FURADANTIN [Concomitant]
     Active Substance: NITROFURANTOIN
     Indication: Urinary tract infection
     Dosage: UNK
  5. LEVOTHYROXINE SODIUM [Concomitant]
     Active Substance: LEVOTHYROXINE SODIUM
     Dosage: UNK

REACTIONS (6)
  - Hypersensitivity [Unknown]
  - Urticaria [Unknown]
  - Dysphagia [Unknown]
  - Device difficult to use [Unknown]
  - Throat tightness [Unknown]
  - Pruritus [Unknown]

NARRATIVE: CASE EVENT DATE: 20220111
